FAERS Safety Report 18503528 (Version 1)
Quarter: 2020Q4

REPORT INFORMATION
  Report Type: Report from Study
  Country: GB (occurrence: GB)
  Receive Date: 20201113
  Receipt Date: 20201113
  Transmission Date: 20210114
  Serious: Yes (Death)
  Sender: FDA-Public Use
  Company Number: GB-PFIZER INC-2020447170

PATIENT

DRUGS (5)
  1. DOXORUBICIN [Suspect]
     Active Substance: DOXORUBICIN
     Indication: LYMPHOPROLIFERATIVE DISORDER
     Dosage: UNK, CYCLIC(COMPLETED AT LEAST 6 CYCLES)
  2. RITUXIMAB. [Suspect]
     Active Substance: RITUXIMAB
     Indication: LYMPHOPROLIFERATIVE DISORDER
     Dosage: 6 CYCLES
  3. PREDNISOLONE. [Suspect]
     Active Substance: PREDNISOLONE
     Indication: LYMPHOPROLIFERATIVE DISORDER
     Dosage: UNK, CYCLIC(COMPLETED AT LEAST 6 CYCLES)
  4. CYCLOPHOSPHAMIDE. [Suspect]
     Active Substance: CYCLOPHOSPHAMIDE
     Indication: LYMPHOPROLIFERATIVE DISORDER
     Dosage: UNK, CYCLIC(COMPLETED AT LEAST 6 CYCLES)
  5. VINCRISTINE SULFATE. [Suspect]
     Active Substance: VINCRISTINE SULFATE
     Indication: LYMPHOPROLIFERATIVE DISORDER
     Dosage: UNK, CYCLIC(COMPLETED AT LEAST 6 CYCLES)

REACTIONS (1)
  - Subarachnoid haemorrhage [Fatal]
